FAERS Safety Report 4867208-2 (Version None)
Quarter: 2005Q4

REPORT INFORMATION
  Report Type: 
  Country: None (occurrence: None)
  Receive Date: 20051222
  Receipt Date: 20051214
  Transmission Date: 20060501
  Serious: Yes (Other)
  Sender: FDA-Public Use
  Company Number: 2005167214

PATIENT
  Age: 80 Year
  Sex: Female

DRUGS (2)
  1. ZOLOFT [Suspect]
     Indication: DEPRESSION
     Dosage: 50 MG (50 MG, 1 IN 1 D), ORAL
     Route: 048
     Dates: start: 20051026, end: 20051026
  2. ACTONEL [Concomitant]

REACTIONS (8)
  - ABNORMAL BEHAVIOUR [None]
  - AGITATION [None]
  - APHASIA [None]
  - DIZZINESS [None]
  - INCOHERENT [None]
  - MENTAL DISORDER [None]
  - POST PROCEDURAL COMPLICATION [None]
  - WEIGHT DECREASED [None]
